FAERS Safety Report 8670420 (Version 2)
Quarter: 2012Q4

REPORT INFORMATION
  Report Type: 
  Country: US (occurrence: US)
  Receive Date: 20120718
  Receipt Date: 20120905
  Transmission Date: 20130627
  Serious: No
  Sender: FDA-Public Use
  Company Number: US-BAYER-2012-071366

PATIENT
  Age: 25 Year
  Sex: Female
  Weight: 98 kg

DRUGS (3)
  1. MIRENA [Suspect]
     Indication: CONTRACEPTION
     Dosage: 20 mcg/24hr, CONT
     Route: 015
     Dates: start: 20120625, end: 20120807
  2. MIRENA [Suspect]
     Indication: MENORRHAGIA
  3. AYGESTIN [Concomitant]
     Indication: ENDOMETRIOSIS
     Dosage: 15 mg, QD
     Dates: start: 20120123

REACTIONS (1)
  - Device expulsion [Recovered/Resolved]
